FAERS Safety Report 25050186 (Version 1)
Quarter: 2025Q1

REPORT INFORMATION
  Report Type: Spontaneous
  Country: DE (occurrence: DE)
  Receive Date: 20250307
  Receipt Date: 20250307
  Transmission Date: 20250409
  Serious: Yes (Life-Threatening, Other)
  Sender: JOHNSON AND JOHNSON
  Company Number: DE-JNJFOC-20250314049

PATIENT
  Age: 12 Year
  Sex: Male

DRUGS (7)
  1. HALOPERIDOL [Suspect]
     Active Substance: HALOPERIDOL
     Indication: Product used for unknown indication
     Dosage: 100 DROP (1/12 MILLILITRE)
     Route: 065
     Dates: start: 2010, end: 2011
  2. HALOPERIDOL [Suspect]
     Active Substance: HALOPERIDOL
     Dosage: 100 DROP (1/12 MILLILITRE)
     Dates: start: 2022, end: 2025
  3. ZYPREXA [Suspect]
     Active Substance: OLANZAPINE
     Indication: Product used for unknown indication
     Dates: start: 2016, end: 2019
  4. ZYPREXA [Suspect]
     Active Substance: OLANZAPINE
     Dates: start: 2010, end: 2014
  5. ZUCLOPENTHIXOL ACETATE [Suspect]
     Active Substance: ZUCLOPENTHIXOL ACETATE
     Indication: Product used for unknown indication
     Dates: start: 2025
  6. ZUCLOPENTHIXOL ACETATE [Suspect]
     Active Substance: ZUCLOPENTHIXOL ACETATE
     Dates: start: 2017, end: 2023
  7. PROMETHAZINE HYDROCHLORIDE [Suspect]
     Active Substance: PROMETHAZINE HYDROCHLORIDE
     Indication: Product used for unknown indication
     Dosage: 100 DROP (1/12 MILLILITRE)
     Dates: start: 2024

REACTIONS (3)
  - Apathy [Recovered/Resolved with Sequelae]
  - Suicidal ideation [Recovered/Resolved with Sequelae]
  - Confusional state [Recovered/Resolved with Sequelae]

NARRATIVE: CASE EVENT DATE: 20110101
